FAERS Safety Report 6635331-8 (Version None)
Quarter: 2010Q1

REPORT INFORMATION
  Report Type: 
  Country: None (occurrence: None)
  Receive Date: 20100315
  Receipt Date: 20100305
  Transmission Date: 20100710
  Serious: Yes (Hospitalization)
  Sender: FDA-Public Use
  Company Number: ZA-ABBOTT-10P-143-0630657-00

PATIENT
  Age: 80 Year
  Sex: Female

DRUGS (3)
  1. EPILIM INJECTION [Suspect]
     Indication: HEADACHE
     Route: 042
     Dates: start: 20091030, end: 20091105
  2. EPILIM INJECTION [Suspect]
     Indication: CONVULSION
  3. SOLU-CORTEF [Suspect]
     Indication: SYSTEMIC LUPUS ERYTHEMATOSUS
     Dates: start: 20091031, end: 20091103

REACTIONS (3)
  - AGGRESSION [None]
  - DISORIENTATION [None]
  - MANIA [None]
